FAERS Safety Report 15148515 (Version 1)
Quarter: 2018Q3

REPORT INFORMATION
  Report Type: Spontaneous
  Country: FR (occurrence: FR)
  Receive Date: 20180716
  Receipt Date: 20180716
  Transmission Date: 20181010
  Serious: Yes (Hospitalization)
  Sender: FDA-Public Use
  Company Number: FR-TEVA-2018-FR-918312

PATIENT
  Age: 44 Year
  Sex: Female
  Weight: 45 kg

DRUGS (3)
  1. VANCOMYCINE [Suspect]
     Active Substance: VANCOMYCIN
     Indication: CLOSTRIDIUM TEST POSITIVE
     Route: 041
     Dates: start: 201802
  2. PANTOPRAZOLE [Suspect]
     Active Substance: PANTOPRAZOLE
     Dosage: 40MG/JOUR
     Route: 041
     Dates: start: 20180221, end: 20180302
  3. LARGACTIL [Suspect]
     Active Substance: CHLORPROMAZINE
     Dosage: 12.5MG/JOUR
     Route: 041
     Dates: end: 20180308

REACTIONS (1)
  - Agranulocytosis [Recovered/Resolved]

NARRATIVE: CASE EVENT DATE: 20180302
